FAERS Safety Report 11830831 (Version 1)
Quarter: 2015Q4

REPORT INFORMATION
  Report Type: Spontaneous
  Country: RO (occurrence: RO)
  Receive Date: 20151214
  Receipt Date: 20151214
  Transmission Date: 20160305
  Serious: Yes (Hospitalization, Other)
  Sender: FDA-Public Use
  Company Number: RO-PFIZER INC-2015378921

PATIENT
  Age: 63 Year
  Sex: Female
  Weight: 78 kg

DRUGS (8)
  1. LERIDIP [Concomitant]
     Dosage: 1X/DAY, EVENING
  2. UNASYN [Concomitant]
     Active Substance: AMPICILLIN SODIUM\SULBACTAM SODIUM
     Dosage: 2X/DAY, MORNING AND EVENING
  3. SUTENT [Suspect]
     Active Substance: SUNITINIB MALATE
     Dosage: 50 MG, 1X/DAY AT NOON, 28 DAYS WITH 14 DAYS PAUSE
     Route: 048
     Dates: start: 20151109
  4. SUTENT [Suspect]
     Active Substance: SUNITINIB MALATE
     Indication: RENAL NEOPLASM
     Dosage: 50 MG, 1X/DAY AT NOON, 28 DAYS WITH 14 DAYS PAUSE
     Route: 048
     Dates: start: 20150919, end: 20151003
  5. CAPTOPRIL. [Concomitant]
     Active Substance: CAPTOPRIL
     Dosage: HALF A TABLET ONCE DAILY  DAY IN THE MORNING AND AS NEEDED
  6. SUTENT [Suspect]
     Active Substance: SUNITINIB MALATE
     Indication: METASTASES TO PLEURA
     Dosage: 50 MG, 1X/DAY AT NOON, 28 DAYS WITH 14 DAYS PAUSE
     Route: 048
     Dates: start: 20151022, end: 20151108
  7. GLYCERINE BORAX [Concomitant]
     Route: 048
  8. TADOR [Concomitant]
     Dosage: UNK, AS NEEDED

REACTIONS (5)
  - Haematemesis [Recovered/Resolved]
  - Sensation of foreign body [Recovered/Resolved]
  - Pigmentation disorder [Recovered/Resolved]
  - Chest pain [Recovered/Resolved]
  - Neck pain [Recovered/Resolved]

NARRATIVE: CASE EVENT DATE: 20151102
